FAERS Safety Report 9037837 (Version 1)
Quarter: 2013Q1

REPORT INFORMATION
  Report Type: Spontaneous
  Country: US (occurrence: US)
  Receive Date: 20130129
  Receipt Date: 20130129
  Transmission Date: 20140127
  Serious: No
  Sender: FDA-Public Use
  Company Number: US-009507513-1301USA012886

PATIENT
  Sex: Female

DRUGS (3)
  1. PEG-INTRON [Suspect]
     Indication: HEPATITIS C
     Dosage: REDIPEN
     Dates: start: 20130110
  2. RIBAVIRIN [Suspect]
     Indication: HEPATITIS C
     Dosage: UNK
     Dates: start: 20130110
  3. TELAPREVIR [Suspect]
     Indication: HEPATITIS C
     Dosage: UNK
     Dates: start: 20130110

REACTIONS (8)
  - Influenza like illness [Unknown]
  - Rhinorrhoea [Unknown]
  - Pain [Unknown]
  - Feeling hot [Unknown]
  - Depression [Unknown]
  - Anxiety [Unknown]
  - Nervousness [Unknown]
  - Panic attack [Unknown]
